FAERS Safety Report 17751885 (Version 1)
Quarter: 2020Q2

REPORT INFORMATION
  Report Type: Spontaneous
  Country: GB (occurrence: GB)
  Receive Date: 20200506
  Receipt Date: 20200506
  Transmission Date: 20200714
  Serious: Yes (Other)
  Sender: FDA-Public Use
  Company Number: GB-PFIZER INC-2020178971

PATIENT
  Age: 38 Year
  Sex: Female
  Weight: 63.04 kg

DRUGS (2)
  1. MISOPROSTOL. [Concomitant]
     Active Substance: MISOPROSTOL
     Route: 067
  2. MISOPROSTOL. [Suspect]
     Active Substance: MISOPROSTOL
     Route: 048
     Dates: start: 20200302, end: 20200302

REACTIONS (2)
  - Chills [Recovered/Resolved]
  - Tremor [Recovered/Resolved]

NARRATIVE: CASE EVENT DATE: 20200402
